FAERS Safety Report 4928710-8 (Version None)
Quarter: 2006Q1

REPORT INFORMATION
  Report Type: 
  Country: None (occurrence: None)
  Receive Date: 20060301
  Receipt Date: 20060221
  Transmission Date: 20060701
  Serious: Yes (Hospitalization)
  Sender: FDA-Public Use
  Company Number: US-BOEHRINGER INGELHEIM PHARMACEUTICALS, INC.-2006-BP-02002BP

PATIENT
  Sex: Male
  Weight: 119.29 kg

DRUGS (20)
  1. MIRAPEX [Suspect]
     Indication: PARKINSON'S DISEASE
     Route: 048
     Dates: start: 20041214, end: 20060113
  2. MIRAPEX [Suspect]
     Route: 048
     Dates: start: 20060114
  3. SINEMET [Suspect]
     Indication: PARKINSON'S DISEASE
     Route: 048
     Dates: start: 20060114
  4. OMEPRAZOLE [Concomitant]
     Indication: PEPTIC ULCER
     Route: 048
  5. LASIX [Concomitant]
     Indication: OEDEMA
     Route: 048
  6. POTASSIUM [Concomitant]
     Indication: MINERAL SUPPLEMENTATION
     Route: 048
  7. GLIBENCLAMIDE [Concomitant]
     Indication: DIABETES MELLITUS
     Route: 048
  8. WARFARIN SODIUM [Concomitant]
     Route: 048
  9. DIGOXIN [Concomitant]
     Indication: CARDIOVASCULAR EVENT PROPHYLAXIS
     Route: 048
  10. IRBESARTAN - HYDROCHLOROTHIAZIDE [Concomitant]
     Indication: HYPERTENSION
     Route: 048
  11. ATENOLOL [Concomitant]
     Indication: HYPERTENSION
     Route: 048
  12. AMLODIPINE BESYLATE [Concomitant]
     Indication: HYPERTENSION
     Route: 048
  13. TADALAFIL [Concomitant]
     Indication: ERECTILE DYSFUNCTION
     Route: 048
  14. GLARGINE INSULIN [Concomitant]
     Indication: DIABETES MELLITUS
     Route: 058
  15. ZALEPLON [Concomitant]
     Indication: SLEEP APNOEA SYNDROME
     Route: 048
  16. METFORMIN [Concomitant]
     Indication: DIABETES MELLITUS
     Route: 048
  17. SOTALOL HCL [Concomitant]
     Indication: HYPERTENSION
     Route: 048
  18. NAPROSYN [Concomitant]
     Route: 048
  19. QUETIAPINE [Concomitant]
     Route: 048
  20. GPI-1485 [Concomitant]
     Route: 048
     Dates: start: 20050809, end: 20060120

REACTIONS (11)
  - BLOOD GLUCOSE DECREASED [None]
  - CONFUSIONAL STATE [None]
  - DIFFICULTY IN WALKING [None]
  - DIPLOPIA [None]
  - DYSARTHRIA [None]
  - HALLUCINATION, AUDITORY [None]
  - HALLUCINATION, VISUAL [None]
  - METABOLIC ENCEPHALOPATHY [None]
  - PAIN IN EXTREMITY [None]
  - PSYCHOTIC DISORDER [None]
  - VISUAL DISTURBANCE [None]
